FAERS Safety Report 7577241-8 (Version None)
Quarter: 2011Q2

REPORT INFORMATION
  Report Type: 
  Country: None (occurrence: None)
  Receive Date: 20110628
  Receipt Date: 20110103
  Transmission Date: 20111010
  Serious: Yes (Hospitalization, Other)
  Sender: FDA-Public Use
  Company Number: US-BAYER-201039189NA

PATIENT
  Age: 20 Year
  Sex: Female
  Weight: 70.455 kg

DRUGS (13)
  1. TOPROL-XL [Concomitant]
  2. YASMIN [Suspect]
     Indication: ACNE
     Route: 048
     Dates: start: 20040101, end: 20080201
  3. VIRAL VACCINES [Concomitant]
     Indication: HUMAN PAPILLOMA VIRUS IMMUNISATION
     Dates: start: 20080109
  4. GARDASIL [Concomitant]
  5. SYNTHROID [Concomitant]
     Indication: THYROID DISORDER
  6. PHENERGAN HCL [Concomitant]
     Route: 030
     Dates: start: 20080202
  7. VITAMIN B-12 [Concomitant]
     Indication: VITAMIN B12 DEFICIENCY
  8. YASMIN [Suspect]
     Indication: CONTRACEPTION
  9. MINOCIN [Concomitant]
  10. LEVOXYL [Concomitant]
     Indication: THYROID DISORDER
  11. VIRAL VACCINES [Concomitant]
     Dates: start: 20071107
  12. YASMIN [Suspect]
     Indication: MENSTRUATION IRREGULAR
  13. PHENERGAN HCL [Concomitant]
     Indication: VOMITING
     Dates: start: 20080201, end: 20080201

REACTIONS (7)
  - HEADACHE [None]
  - VERTIGO [None]
  - DIZZINESS [None]
  - DIPLOPIA [None]
  - HEMIPLEGIA [None]
  - HYPOAESTHESIA [None]
  - WALLENBERG SYNDROME [None]
